FAERS Safety Report 17576399 (Version 1)
Quarter: 2020Q1

REPORT INFORMATION
  Report Type: Spontaneous
  Country: US (occurrence: US)
  Receive Date: 20200324
  Receipt Date: 20200324
  Transmission Date: 20200409
  Serious: Yes (Hospitalization)
  Sender: FDA-Public Use
  Company Number: None

PATIENT
  Age: 5 Year
  Sex: Female

DRUGS (10)
  1. PROBIOTIC [Concomitant]
     Active Substance: PROBIOTICS NOS
  2. METOCLOPRAM [Concomitant]
     Active Substance: METOCLOPRAMIDE
  3. BACLOFEN. [Concomitant]
     Active Substance: BACLOFEN
  4. ONFI [Concomitant]
     Active Substance: CLOBAZAM
  5. ZONISAMIDE. [Concomitant]
     Active Substance: ZONISAMIDE
  6. ALBUTEROL. [Concomitant]
     Active Substance: ALBUTEROL
  7. LEVOCARNITIN [Concomitant]
  8. PULMOZYME [Suspect]
     Active Substance: DORNASE ALFA
     Indication: RESPIRATORY DISORDER
     Route: 055
  9. VITAMIN D3 [Concomitant]
     Active Substance: CHOLECALCIFEROL
  10. CETIRIZINE [Concomitant]
     Active Substance: CETIRIZINE HYDROCHLORIDE

REACTIONS (2)
  - Secretion discharge [None]
  - Respiratory failure [None]

NARRATIVE: CASE EVENT DATE: 20200323
